FAERS Safety Report 6688626-6 (Version None)
Quarter: 2010Q2

REPORT INFORMATION
  Report Type: 
  Country: None (occurrence: None)
  Receive Date: 20100412
  Receipt Date: 20100330
  Transmission Date: 20101027
  Serious: Yes (Other)
  Sender: FDA-Public Use
  Company Number: 2010SP020225

PATIENT
  Age: 52 Year
  Sex: Male

DRUGS (8)
  1. PEG-INTRON [Suspect]
     Indication: HEPATITIS C
  2. RIBAVIRIN [Suspect]
     Indication: HEPATITIS C
  3. ZIDOVUDINE [Concomitant]
  4. LAMIVUDINE [Concomitant]
  5. NEVIRAPINE [Concomitant]
  6. RITONAVIR [Concomitant]
  7. STAVUDINE [Concomitant]
  8. TENOFOVIR [Concomitant]

REACTIONS (2)
  - CEREBRAL ATROPHY [None]
  - DEMYELINATING POLYNEUROPATHY [None]
